FAERS Safety Report 5237702-3 (Version None)
Quarter: 2007Q1

REPORT INFORMATION
  Report Type: 
  Country: None (occurrence: None)
  Receive Date: 20070214
  Receipt Date: 20070209
  Transmission Date: 20070707
  Serious: Yes (Hospitalization)
  Sender: FDA-Public Use
  Company Number: HQWYE562325JAN07

PATIENT
  Age: 41 Year
  Sex: Male

DRUGS (10)
  1. PANTOZOL [Suspect]
     Route: 048
  2. SEROPRAM [Suspect]
     Route: 048
     Dates: start: 20030804, end: 20030818
  3. FERRUM HAUSMANN [Concomitant]
     Route: 065
  4. LITHIUM CARBONATE [Suspect]
     Route: 048
     Dates: start: 20030804, end: 20030813
  5. LITHIUM CARBONATE [Suspect]
     Route: 048
     Dates: start: 20030814, end: 20030819
  6. CARBAMAZEPINE [Suspect]
     Route: 048
     Dates: start: 20030804, end: 20030818
  7. CARBAMAZEPINE [Suspect]
     Route: 048
     Dates: start: 20030816, end: 20030816
  8. TEMESTA [Suspect]
     Route: 065
  9. CLOPIXOL [Suspect]
     Route: 048
  10. AKINETON [Suspect]
     Route: 048

REACTIONS (8)
  - AGGRESSION [None]
  - CONFUSIONAL STATE [None]
  - DISORIENTATION [None]
  - GAIT DISTURBANCE [None]
  - LOSS OF CONSCIOUSNESS [None]
  - SEDATION [None]
  - TREMOR [None]
  - URINARY INCONTINENCE [None]
